FAERS Safety Report 8371898-X (Version None)
Quarter: 2012Q2

REPORT INFORMATION
  Report Type: 
  Country: None (occurrence: None)
  Receive Date: 20120518
  Receipt Date: 20120514
  Transmission Date: 20120825
  Serious: Yes (Life-Threatening, Hospitalization)
  Sender: FDA-Public Use
  Company Number: FR-ROCHE-1057578

PATIENT
  Sex: Male

DRUGS (8)
  1. XOLAIR [Suspect]
     Route: 058
     Dates: start: 20120201, end: 20120307
  2. VENTOLIN [Concomitant]
  3. SINGULAIR [Concomitant]
  4. XOLAIR [Suspect]
     Indication: ASTHMA
     Route: 058
     Dates: start: 20080926
  5. SYMBICORT [Concomitant]
     Dates: start: 20000101
  6. OXEOL [Concomitant]
  7. BRICANYL [Concomitant]
  8. ATROVENT [Concomitant]

REACTIONS (3)
  - PULMONARY EMBOLISM [None]
  - SPLENIC INFARCTION [None]
  - CARDIAC FAILURE [None]
